FAERS Safety Report 15397861 (Version 1)
Quarter: 2018Q3

REPORT INFORMATION
  Report Type: Spontaneous
  Country: US (occurrence: US)
  Receive Date: 20180913
  Receipt Date: 20180913
  Transmission Date: 20181010
  Serious: Yes (Hospitalization, Disabling)
  Sender: FDA-Public Use
  Company Number: None

PATIENT
  Age: 52 Year
  Sex: Female
  Weight: 66.9 kg

DRUGS (10)
  1. AMLODIPINE [Concomitant]
     Active Substance: AMLODIPINE BESYLATE
     Dates: start: 20180620
  2. MECLIZINE 25MG [Concomitant]
     Dates: start: 20180620
  3. ERGOCALCIFEROL 50,000 UNITS [Concomitant]
     Dates: start: 20180620
  4. LISINOPRIL. [Concomitant]
     Active Substance: LISINOPRIL
     Dates: start: 20180620
  5. ASPIRIN 81MG [Concomitant]
     Active Substance: ASPIRIN
     Dates: start: 20180912
  6. BIKTARVY [Suspect]
     Active Substance: BICTEGRAVIR SODIUM\EMTRICITABINE\TENOFOVIR ALAFENAMIDE FUMARATE
     Indication: HIV INFECTION
     Route: 048
     Dates: start: 20180904, end: 20180908
  7. BIKTARVY [Concomitant]
     Active Substance: BICTEGRAVIR SODIUM\EMTRICITABINE\TENOFOVIR ALAFENAMIDE FUMARATE
     Dates: start: 20180904, end: 20180908
  8. OXYCODONE 5MG [Concomitant]
     Active Substance: OXYCODONE
     Dates: start: 20180912
  9. DOCUSATE 100MG [Concomitant]
     Dates: start: 20180912
  10. ACETAMINOPHEN 325MG [Concomitant]
     Dates: start: 20180912

REACTIONS (6)
  - Paraesthesia [None]
  - Spinal cord compression [None]
  - Hypoaesthesia [None]
  - Spinal epidural haematoma [None]
  - Neck pain [None]
  - Headache [None]

NARRATIVE: CASE EVENT DATE: 20180908
